FAERS Safety Report 20970871 (Version 5)
Quarter: 2024Q2

REPORT INFORMATION
  Report Type: Report from Study
  Country: US (occurrence: US)
  Receive Date: 20220616
  Receipt Date: 20240418
  Transmission Date: 20240716
  Serious: Yes (Other)
  Sender: FDA-Public Use
  Company Number: US-ABBVIE-22K-163-4399468-00

PATIENT
  Age: 77 Year
  Sex: Female

DRUGS (5)
  1. IMBRUVICA [Suspect]
     Active Substance: IBRUTINIB
     Indication: Chronic lymphocytic leukaemia
     Route: 048
     Dates: start: 202204, end: 2022
  2. IMBRUVICA [Suspect]
     Active Substance: IBRUTINIB
     Indication: Chronic lymphocytic leukaemia
     Route: 048
     Dates: start: 20220505
  3. COVID-19 VACCINE NOS [Suspect]
     Active Substance: COVID-19 VACCINE NOS
     Indication: COVID-19 immunisation
     Dosage: TIME INTERVAL: 1 TOTAL: FIRST DOSE?ONCE
     Route: 030
  4. COVID-19 VACCINE NOS [Suspect]
     Active Substance: COVID-19 VACCINE NOS
     Indication: COVID-19 immunisation
     Dosage: TIME INTERVAL: 1 TOTAL: SECOND DOSE?ONCE
     Route: 030
  5. COVID-19 VACCINE NOS [Suspect]
     Active Substance: COVID-19 VACCINE NOS
     Indication: COVID-19 immunisation
     Dosage: TIME INTERVAL: 1 TOTAL: BOOSTER DOSE?ONCE
     Route: 030

REACTIONS (22)
  - Brain fog [Unknown]
  - Neoplasm malignant [Unknown]
  - Pain [Unknown]
  - Chest pain [Unknown]
  - Feeling hot [Unknown]
  - Urinary tract infection [Unknown]
  - Reading disorder [Unknown]
  - Diarrhoea [Unknown]
  - Sputum discoloured [Unknown]
  - Bone pain [Unknown]
  - Illness [Unknown]
  - Gastrointestinal disorder [Unknown]
  - Loss of personal independence in daily activities [Unknown]
  - Seasonal allergy [Unknown]
  - Hypersensitivity [Unknown]
  - Oropharyngeal pain [Unknown]
  - Gait disturbance [Unknown]
  - Pain in extremity [Unknown]
  - Gait disturbance [Unknown]
  - Lymphadenopathy [Unknown]
  - Constipation [Unknown]
  - Alopecia [Unknown]

NARRATIVE: CASE EVENT DATE: 20220501
